FAERS Safety Report 5906773-0 (Version None)
Quarter: 2008Q3

REPORT INFORMATION
  Report Type: 
  Country: None (occurrence: None)
  Receive Date: 20080930
  Receipt Date: 20080919
  Transmission Date: 20090109
  Serious: Yes (Hospitalization)
  Sender: FDA-Public Use
  Company Number: AZAAU200800312

PATIENT
  Age: 65 Year
  Sex: Male
  Weight: 76 kg

DRUGS (4)
  1. VIDAZA [Suspect]
     Indication: MYELODYSPLASTIC SYNDROME
     Dosage: (75 MG/M2) ,SUBCUTANEOUS
     Route: 058
     Dates: start: 20080905
  2. THALIDOMIDE [Suspect]
     Indication: MYELODYSPLASTIC SYNDROME
     Dosage: (100 MG / DAY)
     Dates: start: 20080905
  3. AMLODIPINE (AMLODIPINE) [Concomitant]
  4. GLIPIZIDE [Concomitant]

REACTIONS (3)
  - PYREXIA [None]
  - TENOSYNOVITIS [None]
  - WHITE BLOOD CELL COUNT DECREASED [None]
